FAERS Safety Report 13362564 (Version 1)
Quarter: 2017Q1

REPORT INFORMATION
  Report Type: Spontaneous
  Country: US (occurrence: US)
  Receive Date: 20170323
  Receipt Date: 20170323
  Transmission Date: 20170429
  Serious: No
  Sender: FDA-Public Use
  Company Number: US-PFIZER INC-2017123208

PATIENT
  Sex: Female

DRUGS (4)
  1. HERCEPTIN [Suspect]
     Active Substance: TRASTUZUMAB
     Dosage: UNK
  2. CARBOPLATIN. [Suspect]
     Active Substance: CARBOPLATIN
     Dosage: UNK
  3. NEUMEGA [Suspect]
     Active Substance: OPRELVEKIN
     Indication: BREAST CANCER
     Dosage: UNKNOWN DOSE, 3 TIMES (TWICE SUBCUTANEOUS AND ONE DELAYED INJECTION IN THE ARM)
     Route: 058
  4. NEULASTA [Suspect]
     Active Substance: PEGFILGRASTIM
     Dosage: UNK

REACTIONS (2)
  - Neoplasm progression [Unknown]
  - Platelet count decreased [Unknown]
